FAERS Safety Report 7733507-X (Version None)
Quarter: 2011Q3

REPORT INFORMATION
  Report Type: 
  Country: None (occurrence: None)
  Receive Date: 20110907
  Receipt Date: 20110907
  Transmission Date: 20111222
  Serious: Yes (Life-Threatening)
  Sender: FDA-Public Use
  Company Number: None

PATIENT
  Age: 67 Year
  Sex: Male
  Weight: 78.017 kg

DRUGS (1)
  1. HUMIRA [Suspect]
     Indication: ARTHRITIS REACTIVE
     Dosage: 40 MG
     Route: 058
     Dates: start: 20080401, end: 20101001

REACTIONS (1)
  - BLADDER TRANSITIONAL CELL CARCINOMA [None]
